FAERS Safety Report 13705791 (Version 5)
Quarter: 2017Q4

REPORT INFORMATION
  Report Type: Spontaneous
  Country: US (occurrence: US)
  Receive Date: 20170630
  Receipt Date: 20171109
  Transmission Date: 20180320
  Serious: Yes (Death)
  Sender: FDA-Public Use
  Company Number: US-CELGENEUS-USA-20170606280

PATIENT
  Sex: Male

DRUGS (1)
  1. OTEZLA [Suspect]
     Active Substance: APREMILAST
     Indication: PSORIASIS
     Dosage: 60 MILLIGRAM
     Route: 048
     Dates: start: 20170126, end: 20170705

REACTIONS (5)
  - Gait disturbance [Fatal]
  - Pain in extremity [Fatal]
  - Decreased appetite [Fatal]
  - Weight decreased [Fatal]
  - Asthenia [Fatal]
